FAERS Safety Report 4949584-5 (Version None)
Quarter: 2006Q1

REPORT INFORMATION
  Report Type: 
  Country: None (occurrence: None)
  Receive Date: 20060316
  Receipt Date: 20060303
  Transmission Date: 20060701
  Serious: Yes (Other)
  Sender: FDA-Public Use
  Company Number: HQWYE178907MAR06

PATIENT
  Sex: Female

DRUGS (2)
  1. EFFEXOR XR [Suspect]
     Indication: GENERALISED ANXIETY DISORDER
     Dosage: SEEIMAGE
     Route: 048
     Dates: start: 20050701, end: 20050101
  2. EFFEXOR XR [Suspect]
     Indication: GENERALISED ANXIETY DISORDER
     Dosage: SEEIMAGE
     Route: 048
     Dates: start: 20050101

REACTIONS (2)
  - CONDITION AGGRAVATED [None]
  - DEAFNESS [None]
